FAERS Safety Report 5100027-0 (Version None)
Quarter: 2006Q3

REPORT INFORMATION
  Report Type: 
  Country: None (occurrence: None)
  Receive Date: 20060906
  Receipt Date: 20060818
  Transmission Date: 20061208
  Serious: Yes (Hospitalization, Other)
  Sender: FDA-Public Use
  Company Number: 2005154644

PATIENT
  Age: 36 Year
  Sex: Female
  Weight: 78.0187 kg

DRUGS (2)
  1. BEXTRA [Suspect]
     Indication: JOINT SWELLING
     Dosage: 10 MG (2 IN 1 D)
     Dates: start: 20041202, end: 20041230
  2. BEXTRA [Suspect]
     Indication: PAIN
     Dosage: 10 MG (2 IN 1 D)
     Dates: start: 20041202, end: 20041230

REACTIONS (6)
  - CAROTID ARTERY STENOSIS [None]
  - CEREBROVASCULAR ACCIDENT [None]
  - COMPUTERISED TOMOGRAM ABNORMAL [None]
  - GASTROINTESTINAL DISORDER [None]
  - HEADACHE [None]
  - ISCHAEMIC STROKE [None]
